FAERS Safety Report 5375662-5 (Version None)
Quarter: 2007Q2

REPORT INFORMATION
  Report Type: 
  Country: None (occurrence: None)
  Receive Date: 20070629
  Receipt Date: 20070621
  Transmission Date: 20071010
  Serious: Yes (Death)
  Sender: FDA-Public Use
  Company Number: JP-PFIZER INC-2007052121

PATIENT
  Age: 75 Year
  Sex: Male

DRUGS (6)
  1. IRINOTECAN HCL [Suspect]
     Indication: SMALL CELL LUNG CANCER STAGE UNSPECIFIED
     Route: 042
     Dates: start: 20070608, end: 20070608
  2. PARAPLATIN [Suspect]
     Indication: SMALL CELL LUNG CANCER STAGE UNSPECIFIED
     Dosage: TEXT:AUC 5
  3. ALDACTONE [Concomitant]
  4. SLOW-K [Concomitant]
  5. PURSENNID [Concomitant]
  6. FIRSTCIN [Concomitant]

REACTIONS (3)
  - LEUKOPENIA [None]
  - PULMONARY HAEMORRHAGE [None]
  - THROMBOCYTOPENIA [None]
